FAERS Safety Report 20347030 (Version 1)
Quarter: 2022Q1

REPORT INFORMATION
  Report Type: Spontaneous
  Country: PL (occurrence: PL)
  Receive Date: 20220118
  Receipt Date: 20220118
  Transmission Date: 20220423
  Serious: Yes (Other)
  Sender: FDA-Public Use
  Company Number: PL-ABBVIE-22K-129-4238265-00

PATIENT

DRUGS (3)
  1. VENETOCLAX [Suspect]
     Active Substance: VENETOCLAX
     Indication: Acute lymphocytic leukaemia
     Route: 048
  2. AZACITIDINE [Concomitant]
     Active Substance: AZACITIDINE
     Indication: Acute lymphocytic leukaemia
  3. GILTERITINIB [Concomitant]
     Active Substance: GILTERITINIB
     Indication: Acute lymphocytic leukaemia

REACTIONS (2)
  - Haematotoxicity [Unknown]
  - Off label use [Unknown]
